FAERS Safety Report 7232473-3 (Version None)
Quarter: 2011Q1

REPORT INFORMATION
  Report Type: 
  Country: None (occurrence: None)
  Receive Date: 20110107
  Receipt Date: 20110102
  Transmission Date: 20110831
  Serious: Yes (Hospitalization, Other)
  Sender: FDA-Public Use
  Company Number: CL-281-2011

PATIENT
  Age: 51 Year
  Sex: Female

DRUGS (3)
  1. TEMAZEPAM [Suspect]
     Indication: OVERDOSE
     Dosage: 1000MG ONCE ORAL
     Route: 048
  2. PERSANTIN [Suspect]
     Indication: OVERDOSE
     Dosage: 12000MG ONCE ORAL
     Route: 048
  3. OXAZEPAM [Suspect]
     Indication: OVERDOSE
     Dosage: 200MG ONCE ORAL
     Route: 048

REACTIONS (13)
  - HEADACHE [None]
  - SUICIDE ATTEMPT [None]
  - ATRIOVENTRICULAR BLOCK FIRST DEGREE [None]
  - LOSS OF CONSCIOUSNESS [None]
  - SOMNOLENCE [None]
  - HYPOTENSION [None]
  - SELF-MEDICATION [None]
  - BLOOD PRESSURE DIASTOLIC DECREASED [None]
  - MULTIPLE DRUG OVERDOSE INTENTIONAL [None]
  - CHEST PAIN [None]
  - VOMITING [None]
  - PLATELET DISORDER [None]
  - TOXICITY TO VARIOUS AGENTS [None]
